FAERS Safety Report 6462114-4 (Version None)
Quarter: 2009Q4

REPORT INFORMATION
  Report Type: 
  Country: None (occurrence: None)
  Receive Date: 20091130
  Receipt Date: 20091116
  Transmission Date: 20100525
  Serious: Yes (Other)
  Sender: FDA-Public Use
  Company Number: PHHY2008GB05300

PATIENT
  Sex: Female

DRUGS (4)
  1. VISCOTEARS (NVO) [Suspect]
     Indication: DRY EYE
     Dosage: UNK
     Dates: start: 20070830, end: 20080325
  2. VISCOTEARS (NVO) [Suspect]
     Dosage: UNK
     Dates: start: 20080325
  3. TIMOLOL (NGX) [Suspect]
     Dosage: UNK
     Dates: start: 20070101
  4. LIQUIFILM [Concomitant]
     Dosage: 6/DAY
     Route: 047
     Dates: start: 20070101

REACTIONS (5)
  - ANXIETY [None]
  - DRY EYE [None]
  - EYE MOVEMENT DISORDER [None]
  - VISUAL FIELD DEFECT [None]
  - VISUAL IMPAIRMENT [None]
